FAERS Safety Report 14834022 (Version 1)
Quarter: 2018Q2

REPORT INFORMATION
  Report Type: Spontaneous
  Country: US (occurrence: US)
  Receive Date: 20180501
  Receipt Date: 20180501
  Transmission Date: 20180711
  Serious: No
  Sender: FDA-Public Use
  Company Number: US-ROCHE-641521

PATIENT
  Sex: Female

DRUGS (2)
  1. AVASTIN [Suspect]
     Active Substance: BEVACIZUMAB
     Indication: NON-SMALL CELL LUNG CANCER
     Dosage: UNK
     Route: 065
  2. TARCEVA [Suspect]
     Active Substance: ERLOTINIB HYDROCHLORIDE
     Indication: NON-SMALL CELL LUNG CANCER
     Dosage: 150 MG, QD
     Route: 048

REACTIONS (10)
  - Diarrhoea [Unknown]
  - Paraesthesia oral [Recovering/Resolving]
  - Skin hyperpigmentation [Unknown]
  - Laceration [Unknown]
  - Skin exfoliation [Unknown]
  - Abdominal pain [Unknown]
  - Skin fissures [Recovering/Resolving]
  - Rash [Unknown]
  - Decreased appetite [Unknown]
  - Pruritus [Unknown]
